FAERS Safety Report 9110030 (Version 1)
Quarter: 2013Q1

REPORT INFORMATION
  Report Type: Spontaneous
  Country: SG (occurrence: SG)
  Receive Date: 20130222
  Receipt Date: 20130222
  Transmission Date: 20140127
  Serious: Yes (Other)
  Sender: FDA-Public Use
  Company Number: SG-PFIZER INC-2013065689

PATIENT
  Age: 19 Year
  Sex: Male

DRUGS (1)
  1. PHENYTOIN [Suspect]

REACTIONS (3)
  - Agitation [Unknown]
  - Insomnia [Unknown]
  - Abnormal behaviour [Unknown]
